FAERS Safety Report 4283512-3 (Version None)
Quarter: 2004Q1

REPORT INFORMATION
  Report Type: 
  Country: None (occurrence: None)
  Receive Date: 20040121
  Receipt Date: 20030510
  Transmission Date: 20041129
  Serious: Yes (Hospitalization)
  Sender: FDA-Public Use
  Company Number: A03200301020

PATIENT
  Age: 75 Year
  Sex: Male

DRUGS (7)
  1. PLAVIX [Suspect]
     Indication: CORONARY ARTERIAL STENT INSERTION
     Dosage: 75 MG QD - ORAL
     Route: 048
     Dates: start: 20030201, end: 20030228
  2. PLAVIX [Suspect]
     Indication: PERIPHERAL VASCULAR DISORDER
     Dosage: 75 MG QD - ORAL
     Route: 048
     Dates: start: 20030201, end: 20030228
  3. ASPIRIN [Suspect]
     Indication: CORONARY ARTERIAL STENT INSERTION
     Dosage: 325 MG QD - ORAL
     Route: 048
     Dates: end: 20030228
  4. ISOSORBIDE MONONITRATE [Concomitant]
  5. METOPROLOL [Concomitant]
  6. GLYCERYL TRINITRATE [Concomitant]
  7. COLESEVELAM HYDROCHLORIDE [Concomitant]

REACTIONS (4)
  - BLOOD PRESSURE SYSTOLIC DECREASED [None]
  - CARDIAC ARREST [None]
  - CONSTIPATION [None]
  - GASTROINTESTINAL ULCER HAEMORRHAGE [None]
